FAERS Safety Report 19592785 (Version 1)
Quarter: 2021Q3

REPORT INFORMATION
  Report Type: Spontaneous
  Country: US (occurrence: US)
  Receive Date: 20210721
  Receipt Date: 20210721
  Transmission Date: 20211014
  Serious: Yes (Hospitalization)
  Sender: FDA-Public Use
  Company Number: None

PATIENT
  Age: 56 Year
  Sex: Female

DRUGS (9)
  1. AMBRISENTAN 10MG TAB [Suspect]
     Active Substance: AMBRISENTAN
     Indication: PULMONARY ARTERIAL HYPERTENSION
     Route: 048
     Dates: start: 20191106
  2. TORSEMIDE. [Concomitant]
     Active Substance: TORSEMIDE
  3. OZEMPIC [Concomitant]
     Active Substance: SEMAGLUTIDE
  4. PANTOPRAZOLE [Concomitant]
     Active Substance: PANTOPRAZOLE
  5. POT CHLORIDE ER [Concomitant]
  6. SPIRONOLACT [Concomitant]
     Active Substance: SPIRONOLACTONE
  7. ALBUTEROL HFA [Concomitant]
     Active Substance: ALBUTEROL SULFATE
  8. AUG BETAMET [Concomitant]
  9. SERTRALINE [Concomitant]
     Active Substance: SERTRALINE HYDROCHLORIDE

REACTIONS (1)
  - Vascular device infection [None]

NARRATIVE: CASE EVENT DATE: 20210714
